FAERS Safety Report 20747235 (Version 2)
Quarter: 2022Q2

REPORT INFORMATION
  Report Type: Spontaneous
  Country: AU (occurrence: AU)
  Receive Date: 20220425
  Receipt Date: 20220504
  Transmission Date: 20220721
  Serious: Yes (Other)
  Sender: FDA-Public Use
  Company Number: AU-BAUSCH-BL-2022-009780

PATIENT
  Age: 62 Year
  Sex: Male

DRUGS (5)
  1. PREDNISOLONE [Suspect]
     Active Substance: PREDNISOLONE
     Indication: Product used for unknown indication
     Route: 048
  2. LEFLUNOMIDE [Suspect]
     Active Substance: LEFLUNOMIDE
     Indication: Product used for unknown indication
     Route: 065
  3. FILGRASTIM [Suspect]
     Active Substance: FILGRASTIM
     Indication: Product used for unknown indication
     Route: 065
  4. METHOTREXATE [Suspect]
     Active Substance: METHOTREXATE
     Indication: Product used for unknown indication
     Route: 065
  5. FOLIC ACID [Concomitant]
     Active Substance: FOLIC ACID
     Indication: Product used for unknown indication
     Route: 065

REACTIONS (21)
  - Acute kidney injury [Unknown]
  - Acute respiratory distress syndrome [Unknown]
  - Condition aggravated [Unknown]
  - Hepatocellular injury [Unknown]
  - Hypoxia [Unknown]
  - Leukopenia [Unknown]
  - Myelosuppression [Unknown]
  - Neutropenia [Unknown]
  - Pneumocystis jirovecii pneumonia [Unknown]
  - Respiratory failure [Unknown]
  - Sepsis [Unknown]
  - Thrombocytopenia [Unknown]
  - Anaemia [Unknown]
  - Cough [Unknown]
  - Crepitations [Unknown]
  - Fall [Unknown]
  - Hyperferritinaemia [Unknown]
  - Lethargy [Unknown]
  - Night sweats [Unknown]
  - Pyrexia [Unknown]
  - Respiratory disorder [Unknown]
